FAERS Safety Report 19061169 (Version 2)
Quarter: 2021Q2

REPORT INFORMATION
  Report Type: Spontaneous
  Country: JP (occurrence: JP)
  Receive Date: 20210326
  Receipt Date: 20210406
  Transmission Date: 20210717
  Serious: Yes (Other)
  Sender: FDA-Public Use
  Company Number: JP-ROCHE-2798464

PATIENT
  Age: 7 Decade
  Sex: Female

DRUGS (2)
  1. TECENTRIQ [Suspect]
     Active Substance: ATEZOLIZUMAB
     Indication: HEPATOCELLULAR CARCINOMA
     Route: 041
     Dates: start: 202012, end: 202102
  2. AVASTIN [Suspect]
     Active Substance: BEVACIZUMAB
     Indication: HEPATOCELLULAR CARCINOMA
     Route: 041
     Dates: start: 202012, end: 202102

REACTIONS (1)
  - Stevens-Johnson syndrome [Recovered/Resolved]

NARRATIVE: CASE EVENT DATE: 202102
